FAERS Safety Report 5086621-4 (Version None)
Quarter: 2006Q3

REPORT INFORMATION
  Report Type: 
  Country: None (occurrence: None)
  Receive Date: 20060703
  Receipt Date: 20050916
  Transmission Date: 20061208
  Serious: No
  Sender: FDA-Public Use
  Company Number: 2005S1009218

PATIENT
  Age: 26 Year
  Sex: Male

DRUGS (6)
  1. CLOZAPINE [Suspect]
     Dosage: SEE IMAGE
     Route: 048
     Dates: start: 20021105, end: 20050817
  2. CLOZAPINE [Suspect]
     Dosage: SEE IMAGE
     Route: 048
     Dates: start: 20050818
  3. RISPERIDONE [Concomitant]
  4. MONTELUKAST SODIUM [Concomitant]
  5. ALBUTEROL SPIROS [Concomitant]
  6. BUDESONIDE [Concomitant]

REACTIONS (1)
  - GRANULOCYTOPENIA [None]
